FAERS Safety Report 13347006 (Version 7)
Quarter: 2019Q2

REPORT INFORMATION
  Report Type: Report from Study
  Country: US (occurrence: US)
  Receive Date: 20170317
  Receipt Date: 20190529
  Transmission Date: 20190711
  Serious: No
  Sender: FDA-Public Use
  Company Number: PHEH2017US007972

PATIENT
  Sex: Female

DRUGS (3)
  1. AFINITOR [Suspect]
     Active Substance: EVEROLIMUS
     Dosage: 2.5 MG, QD(CUTTING THE TABLETS IN HALF, TAKING 2.5 MG)
     Route: 048
  2. AFINITOR [Suspect]
     Active Substance: EVEROLIMUS
     Indication: ANGIOMYOLIPOMA
     Dosage: 5 MG, QD
     Route: 048
     Dates: start: 20150622, end: 20170222
  3. AFINITOR [Suspect]
     Active Substance: EVEROLIMUS
     Dosage: UNK (FIRST COUPLE DAYS OF JULY)
     Route: 048

REACTIONS (6)
  - Abdominal pain upper [Recovering/Resolving]
  - Wrong technique in product usage process [Unknown]
  - Oropharyngeal pain [Recovering/Resolving]
  - Malaise [Not Recovered/Not Resolved]
  - Dyspnoea [Recovering/Resolving]
  - Urticaria [Unknown]
